FAERS Safety Report 9349413 (Version 1)
Quarter: 2013Q2

REPORT INFORMATION
  Report Type: Spontaneous
  Country: US (occurrence: US)
  Receive Date: 20130614
  Receipt Date: 20130614
  Transmission Date: 20140414
  Serious: No
  Sender: FDA-Public Use
  Company Number: US-009507513-1306USA005849

PATIENT
  Age: 4 Month
  Sex: Female
  Weight: 5.44 kg

DRUGS (2)
  1. CLARITIN ORAL SOLUTION [Suspect]
     Indication: HYPERSENSITIVITY
     Dosage: 2.5 MG, QD
     Route: 048
  2. CLARITIN ORAL SOLUTION [Suspect]
     Indication: MEDICAL OBSERVATION

REACTIONS (3)
  - Overdose [Recovering/Resolving]
  - Drug administered to patient of inappropriate age [Unknown]
  - Off label use [Unknown]
